FAERS Safety Report 5910919-8 (Version None)
Quarter: 2008Q4

REPORT INFORMATION
  Report Type: 
  Country: None (occurrence: None)
  Receive Date: 20081007
  Receipt Date: 20080708
  Transmission Date: 20090506
  Serious: Yes (Other)
  Sender: FDA-Public Use
  Company Number: US-ASTRAZENECA-2008UW13677

PATIENT
  Age: 53 Year
  Sex: Female
  Weight: 73.5 kg

DRUGS (4)
  1. ARIMIDEX [Suspect]
     Indication: BREAST CANCER
     Route: 048
     Dates: start: 20071101
  2. EFFEXOR [Concomitant]
  3. VITAMIN D [Concomitant]
  4. CALCIUM [Concomitant]

REACTIONS (3)
  - CARPAL TUNNEL SYNDROME [None]
  - HOT FLUSH [None]
  - WEIGHT INCREASED [None]
